FAERS Safety Report 12800342 (Version 1)
Quarter: 2016Q3

REPORT INFORMATION
  Report Type: Spontaneous
  Country: US (occurrence: US)
  Receive Date: 20160930
  Receipt Date: 20160930
  Transmission Date: 20161109
  Serious: Yes (Other)
  Sender: FDA-Public Use
  Company Number: US-SAOL THERAPEUTICS-2016SAO00729

PATIENT
  Sex: Female

DRUGS (1)
  1. LIORESAL [Suspect]
     Active Substance: BACLOFEN
     Indication: MUSCLE SPASTICITY
     Dosage: 519.3 ?G, \DAY
     Route: 037

REACTIONS (3)
  - Device alarm issue [Recovered/Resolved]
  - Device failure [Recovered/Resolved]
  - Decubitus ulcer [Unknown]

NARRATIVE: CASE EVENT DATE: 2016
